FAERS Safety Report 4282587-5 (Version None)
Quarter: 2004Q1

REPORT INFORMATION
  Report Type: 
  Country: None (occurrence: None)
  Receive Date: 20040130
  Receipt Date: 20020412
  Transmission Date: 20041129
  Serious: No
  Sender: FDA-Public Use
  Company Number: US-BRISTOL-MYERS SQUIBB COMPANY-11815511

PATIENT
  Age: 36 Year
  Sex: Male

DRUGS (6)
  1. SERZONE [Suspect]
     Indication: DEPRESSION
     Dosage: 2/99:150MG TABLETS; 10/99 INCREASE TO 250MG TABS; 3/21/00:250MG BID;4/4/01 TO QD
     Route: 048
     Dates: start: 19990209, end: 20010901
  2. KLONOPIN [Concomitant]
     Dosage: 3/21/00: TO 1MG BID PRN; STOPPED 9/25/01; RESTARTED 3/19/02: 1MG Q HS.
     Route: 048
  3. DESYREL [Concomitant]
     Indication: INSOMNIA
     Dosage: 150MG 1- Q HS; INCREASE TO 2-Q HS ON 12/7/00.
     Route: 048
     Dates: start: 20000920
  4. TRAZODONE HCL [Concomitant]
     Dates: end: 20010115
  5. REMERON [Concomitant]
     Dosage: 45MG 1 TAB Q HS
     Route: 048
  6. ATIVAN [Concomitant]
     Indication: ANXIETY
     Dosage: INCREASE TO TID ON 1/17/02
     Route: 048
     Dates: start: 20010925

REACTIONS (1)
  - ALANINE AMINOTRANSFERASE INCREASED [None]
